FAERS Safety Report 7915104-6 (Version None)
Quarter: 2011Q4

REPORT INFORMATION
  Report Type: 
  Country: None (occurrence: None)
  Receive Date: 20111115
  Receipt Date: 20111013
  Transmission Date: 20120403
  Serious: Yes (Hospitalization)
  Sender: FDA-Public Use
  Company Number: DE-ROCHE-1010690

PATIENT
  Sex: Male
  Weight: 76 kg

DRUGS (2)
  1. ASPIRIN [Concomitant]
     Route: 048
     Dates: start: 20110915
  2. XELODA [Suspect]
     Indication: RECTAL CANCER
     Dosage: BID, DAY 1- DAY 5 OF 3 WEEKS CYCLE
     Route: 048
     Dates: start: 20110429

REACTIONS (1)
  - CONVULSION [None]
